FAERS Safety Report 4477737-1 (Version None)
Quarter: 2004Q4

REPORT INFORMATION
  Report Type: 
  Country: None (occurrence: None)
  Receive Date: 20041014
  Receipt Date: 20041001
  Transmission Date: 20050328
  Serious: Yes (Other)
  Sender: FDA-Public Use
  Company Number: 163-20785-04100152

PATIENT
  Sex: Male

DRUGS (2)
  1. THALIDOMIDE\PLACEBO (THALOMID) (CAPSULES) [Suspect]
     Indication: PROSTATE CANCER STAGE 0
     Dosage: 200 MG, DAILY, ORAL
     Route: 048
  2. LEUPROLIDE (L) OR GOSERELIN (G) [Suspect]
     Indication: PROSTATE CANCER STAGE 0
     Dosage: SEE IMAGE, SC
     Route: 058

REACTIONS (17)
  - ASTHENIA [None]
  - CONSTIPATION [None]
  - DIZZINESS [None]
  - DRY EYE [None]
  - DRY MOUTH [None]
  - DYSGEUSIA [None]
  - FATIGUE [None]
  - HEADACHE [None]
  - HOT FLUSH [None]
  - HYPONATRAEMIA [None]
  - HYPOTHYROIDISM [None]
  - LETHARGY [None]
  - MALAISE [None]
  - MUSCLE CRAMP [None]
  - OEDEMA [None]
  - PAIN [None]
  - PERIPHERAL SENSORY NEUROPATHY [None]
